FAERS Safety Report 16961185 (Version 1)
Quarter: 2019Q4

REPORT INFORMATION
  Report Type: Spontaneous
  Country: PT (occurrence: PT)
  Receive Date: 20191025
  Receipt Date: 20191025
  Transmission Date: 20200122
  Serious: Yes (Other)
  Sender: FDA-Public Use
  Company Number: PT-ACCORD-159065

PATIENT
  Age: 73 Year
  Sex: Female

DRUGS (1)
  1. ANASTROZOL ACCORD [Suspect]
     Active Substance: ANASTROZOLE
     Indication: BREAST CANCER
     Route: 048
     Dates: start: 20190530

REACTIONS (4)
  - Insomnia [Unknown]
  - Headache [Unknown]
  - Dry skin [Unknown]
  - Arthralgia [Unknown]

NARRATIVE: CASE EVENT DATE: 201905
